FAERS Safety Report 8969851 (Version 1)
Quarter: 2012Q4

REPORT INFORMATION
  Report Type: 
  Country: US (occurrence: US)
  Receive Date: 20121218
  Receipt Date: 20121218
  Transmission Date: 20130627
  Serious: No
  Sender: FDA-Public Use
  Company Number: US-BRISTOL-MYERS SQUIBB COMPANY-16541682

PATIENT
  Age: 32 Year
  Sex: Female
  Weight: 77.1 kg

DRUGS (1)
  1. ABILIFY [Suspect]
     Indication: DEPRESSION
     Dosage: Exp date: Jul 2014. Started 3-4 yrs ago

REACTIONS (1)
  - Tremor [Recovering/Resolving]
